FAERS Safety Report 9743165 (Version 1)
Quarter: 2013Q4

REPORT INFORMATION
  Report Type: Spontaneous
  Country: US (occurrence: US)
  Receive Date: 20131210
  Receipt Date: 20131210
  Transmission Date: 20140711
  Serious: No
  Sender: FDA-Public Use
  Company Number: US-GILEAD-2009-0024484

PATIENT
  Age: 74 Year
  Sex: Female

DRUGS (10)
  1. LETAIRIS [Suspect]
     Indication: PULMONARY ARTERIAL HYPERTENSION
  2. WARFARIN [Concomitant]
  3. CRESTOR [Concomitant]
  4. ZYRTEC [Concomitant]
  5. VITAMIN B COMPLEX [Concomitant]
  6. VITAMIN D [Concomitant]
  7. MIRALAX [Concomitant]
  8. FLAX OIL/FISH OIL [Concomitant]
  9. TYLENOL ARTHRITIS [Concomitant]
  10. GAS-X [Concomitant]

REACTIONS (2)
  - Hepatic cyst [Unknown]
  - Pain [Recovering/Resolving]
